FAERS Safety Report 7985170-0 (Version None)
Quarter: 2011Q4

REPORT INFORMATION
  Report Type: 
  Country: None (occurrence: None)
  Receive Date: 20111213
  Receipt Date: 20110225
  Transmission Date: 20120403
  Serious: No
  Sender: FDA-Public Use
  Company Number: A0915434A

PATIENT
  Age: 18 Year

DRUGS (1)
  1. SODIUM FLUORIDE + POTASSIUM NITRATE TOOTHPASTE (SODIUM FLUORIDE + POTA [Suspect]
     Indication: SENSITIVITY OF TEETH
     Dosage: DENTAL
     Route: 004

REACTIONS (6)
  - EYE SWELLING [None]
  - CONDITION AGGRAVATED [None]
  - DYSPNOEA [None]
  - HYPERSENSITIVITY [None]
  - EYE PRURITUS [None]
  - ERYTHEMA [None]
